FAERS Safety Report 4536746-4 (Version None)
Quarter: 2004Q4

REPORT INFORMATION
  Report Type: 
  Country: None (occurrence: None)
  Receive Date: 20041223
  Receipt Date: 20040929
  Transmission Date: 20050328
  Serious: Yes (Other)
  Sender: FDA-Public Use
  Company Number: GB-JNJFOC-20040909790

PATIENT
  Sex: Female

DRUGS (4)
  1. GALANTAMINE [Suspect]
     Route: 049
  2. GALANTAMINE [Suspect]
     Route: 049
  3. GALANTAMINE [Suspect]
     Route: 049
  4. FOLIC ACID [Concomitant]
     Route: 065

REACTIONS (2)
  - RASH [None]
  - SWELLING FACE [None]
